FAERS Safety Report 18596056 (Version 2)
Quarter: 2020Q4

REPORT INFORMATION
  Report Type: Spontaneous
  Country: CN (occurrence: CN)
  Receive Date: 20201209
  Receipt Date: 20201217
  Transmission Date: 20210114
  Serious: Yes (Other)
  Sender: FDA-Public Use
  Company Number: CN-ASTRAZENECA-2020SF59601

PATIENT
  Age: 84 Year
  Sex: Male
  Weight: 60 kg

DRUGS (7)
  1. IRESSA [Suspect]
     Active Substance: GEFITINIB
     Route: 048
     Dates: start: 201906
  2. THYMOSIN [Concomitant]
     Active Substance: THYMOSIN
     Indication: NUTRITIONAL SUPPLEMENTATION
  3. IRESSA [Suspect]
     Active Substance: GEFITINIB
     Dosage: TAKE THE MEDICINE EVERY OTHER DAY AND TAKE THE MEDICINE IRREGULARLY
     Route: 048
     Dates: start: 202008
  4. IRESSA [Suspect]
     Active Substance: GEFITINIB
     Dosage: YIRUKE
     Route: 065
     Dates: start: 201903, end: 201906
  5. IRESSA [Suspect]
     Active Substance: GEFITINIB
     Route: 048
     Dates: start: 202010
  6. AZITHROMYCIN ANHYDROUS. [Concomitant]
     Active Substance: AZITHROMYCIN ANHYDROUS
  7. CENTRUM [Concomitant]
     Active Substance: VITAMINS
     Indication: VITAMIN SUPPLEMENTATION
     Dosage: AT NIGHT

REACTIONS (12)
  - Rash [Recovering/Resolving]
  - Pruritus [Unknown]
  - Dry skin [Unknown]
  - Drug resistance [Unknown]
  - Lymphadenopathy [Unknown]
  - Wheezing [Unknown]
  - Mouth ulceration [Recovered/Resolved]
  - Cough [Unknown]
  - Obstruction [Unknown]
  - Erythema [Unknown]
  - EGFR gene mutation [Unknown]
  - Gastrointestinal tract irritation [Unknown]

NARRATIVE: CASE EVENT DATE: 201910
